FAERS Safety Report 7635445-X (Version None)
Quarter: 2011Q3

REPORT INFORMATION
  Report Type: 
  Country: None (occurrence: None)
  Receive Date: 20110726
  Receipt Date: 20110718
  Transmission Date: 20111222
  Serious: Yes (Death, Hospitalization)
  Sender: FDA-Public Use
  Company Number: US-US-EMD SERONO, INC.-7005915

PATIENT
  Sex: Male
  Weight: 41 kg

DRUGS (2)
  1. KEPPRA [Concomitant]
     Indication: CONVULSION
     Route: 048
     Dates: start: 20090601
  2. REBIF [Suspect]
     Indication: MULTIPLE SCLEROSIS
     Route: 058
     Dates: start: 20090710, end: 20100521

REACTIONS (4)
  - PAIN [None]
  - MUSCULOSKELETAL STIFFNESS [None]
  - CONVULSION [None]
  - VITAMIN D DECREASED [None]
